FAERS Safety Report 19057127 (Version 1)
Quarter: 2021Q1

REPORT INFORMATION
  Report Type: Spontaneous
  Country: US (occurrence: US)
  Receive Date: 20210324
  Receipt Date: 20210324
  Transmission Date: 20210420
  Serious: No
  Sender: FDA-Public Use
  Company Number: US-HISAMITSU-2021-US-000469

PATIENT
  Age: 51 Year
  Sex: Female
  Weight: 86.18 kg

DRUGS (1)
  1. SALONPAS PAIN RELIEF [Suspect]
     Active Substance: MENTHOL\METHYL SALICYLATE
     Indication: ANALGESIC THERAPY
     Dosage: 1 PATCH DAILY FOR 2 APPLICATIONS
     Route: 061
     Dates: start: 202012, end: 202101

REACTIONS (4)
  - Intentional product misuse [Recovered/Resolved]
  - Pigmentation disorder [Not Recovered/Not Resolved]
  - Application site burn [Recovered/Resolved]
  - Application site pruritus [Not Recovered/Not Resolved]

NARRATIVE: CASE EVENT DATE: 202101
